FAERS Safety Report 12458945 (Version 1)
Quarter: 2016Q2

REPORT INFORMATION
  Report Type: Spontaneous
  Country: US (occurrence: None)
  Receive Date: 20160610
  Receipt Date: 20160610
  Transmission Date: 20160815
  Serious: Yes (Other)
  Sender: FDA-Public Use
  Company Number: None

PATIENT
  Age: 74 Year
  Sex: Male
  Weight: 106.6 kg

DRUGS (6)
  1. CARVEDILOL. [Concomitant]
     Active Substance: CARVEDILOL
  2. NIACIN. [Concomitant]
     Active Substance: NIACIN
  3. D3 B12 [Concomitant]
  4. LISINOPRIL, 5 MG ACCORD [Suspect]
     Active Substance: LISINOPRIL
     Indication: ATRIAL FIBRILLATION
     Dosage: 90 TABLET(S) ONCE A DAY TAKEN BY MOUTH
     Route: 048
     Dates: start: 20160301, end: 20160531
  5. DIGOXIN. [Concomitant]
     Active Substance: DIGOXIN
  6. LISINOPRIL. [Concomitant]
     Active Substance: LISINOPRIL

REACTIONS (4)
  - Blood pressure increased [None]
  - Product substitution issue [None]
  - Drug ineffective [None]
  - Product size issue [None]

NARRATIVE: CASE EVENT DATE: 20160401
